FAERS Safety Report 5670030-0 (Version None)
Quarter: 2008Q1

REPORT INFORMATION
  Report Type: 
  Country: None (occurrence: None)
  Receive Date: 20080312
  Receipt Date: 20080225
  Transmission Date: 20080703
  Serious: Yes (Death)
  Sender: FDA-Public Use
  Company Number: DSA_31515_2008

PATIENT
  Sex: Female

DRUGS (63)
  1. LORAZEPAM [Suspect]
     Indication: SLEEP DISORDER
     Dosage: (1 TABLET ONCE A DAY DF ORAL), (1 TABLET ONCE A DAY DF ORAL)
     Route: 048
     Dates: start: 20041014, end: 20041014
  2. LORAZEPAM [Suspect]
     Indication: SLEEP DISORDER
     Dosage: (1 TABLET ONCE A DAY DF ORAL), (1 TABLET ONCE A DAY DF ORAL)
     Route: 048
     Dates: start: 20041030, end: 20041030
  3. ACETYLSALICYLIC ACID SRT [Suspect]
     Indication: THROMBOSIS PROPHYLAXIS
     Dosage: (100 MG QD ORAL)
     Dates: start: 20040729, end: 20041107
  4. ALLOPURINOL [Suspect]
     Indication: HYPERURICAEMIA
     Dosage: (1 TABLET ONCE A DAY DF ORAL)
     Route: 048
     Dates: start: 20041024, end: 20041102
  5. BELOC ZOK (BELOC ZOK - METOPROLOL AUCCINATE ) [Suspect]
     Indication: ACUTE MYOCARDIAL INFARCTION
     Dosage: (1-2  TABLETS DAILY DF ORAL)
     Route: 048
     Dates: start: 20041012, end: 20041031
  6. CARBAMAZEPINE [Suspect]
     Indication: AGITATION
     Dosage: (.5 TABLET TWICE A DAY DF ORAL)
     Route: 048
     Dates: start: 20041101, end: 20041102
  7. CLEXANE (CLEXANE - HEPARIN-FRACTION,  SODIUM SALT) (NOT SPECIFIED) [Suspect]
     Indication: THROMBOSIS PROPHYLAXIS
     Dosage: (40 ML BID SUBCUTANEOUS)
     Route: 058
     Dates: start: 20041011, end: 20041028
  8. DELIX /00885601/ (DELIX - RAMIPRIL) (NOT SPECIFIED) [Suspect]
     Indication: HYPERTENSION
     Dosage: (2.5 MMG QD ORAL)
     Route: 048
     Dates: start: 20041007, end: 20041031
  9. DIGITOXIN (DIGITOXIN) [Suspect]
     Indication: CARDIAC FAILURE
     Dosage: (0.07 MG 1-6 TIMES DAILY ORAL)
     Route: 048
     Dates: start: 20041014, end: 20041027
  10. DIGITOXIN (DIGITOXIN) [Suspect]
     Indication: CARDIAC FAILURE
     Dosage: (0.07 MG 1-6 TIMES DAILY ORAL)
     Route: 048
     Dates: start: 20041103, end: 20041111
  11. DIPIPERON (DIPIPERON - PIPAMPERONE) (NOT SPECIFIED) [Suspect]
     Indication: CONFUSIONAL STATE
     Dosage: (1 TABLET  ONCE A DAY DF ORAL)
     Route: 048
     Dates: start: 20041103, end: 20041104
  12. DISALUNIL (DISALUNIL - HYDROCHLOROTHIAZIDE) [Suspect]
     Indication: HYPERTENSION
     Dosage: (25 MG QD ORAL)
     Route: 048
     Dates: start: 20041012, end: 20041031
  13. EUNERPAN (EUNERPAN - MELPERONE HYDROCHLORIDE) [Suspect]
     Indication: SLEEP DISORDER
     Dosage: (1 ML QD  ORAL),  (1 ML QD ORAL)
     Route: 048
     Dates: start: 20041030, end: 20041031
  14. EUNERPAN (EUNERPAN - MELPERONE HYDROCHLORIDE) [Suspect]
     Indication: SLEEP DISORDER
     Dosage: (1 ML QD  ORAL),  (1 ML QD ORAL)
     Route: 048
     Dates: start: 20041102, end: 20041104
  15. FERRO-SANOL DUODENAL (FERRO SANOL  DUODENAL- AMINOACETIC ACID/FERROUS [Suspect]
     Indication: MINERAL SUPPLEMENTATION
     Dosage: (1 TABLET ONCE A DAY DF ORAL)
     Route: 048
     Dates: start: 20041103, end: 20041107
  16. FURESIS (FURESIE - FUROSEMIDE) [Suspect]
     Indication: POLYURIA
     Dosage: (40 MG QD, INTRAVENOUS) (NOT OTHERWISE SPECIFIED)
     Route: 042
     Dates: start: 20041102, end: 20041111
  17. FUROSEMIDE [Suspect]
     Indication: POLYURIA
     Dosage: (10 MG QD ORAL)
     Route: 048
     Dates: start: 20041101, end: 20041101
  18. GLUCOSE (GLUCOSE) [Suspect]
     Indication: HYPOGLYCAEMIA
     Dosage: (DF  INTRAVENOUS (NOT OTHERWISE SPECIFIED)
     Route: 042
     Dates: start: 20041102, end: 20041102
  19. GLUCOSE (GLUCOSE) [Suspect]
     Indication: HYPOGLYCAEMIA
     Dosage: (DF  INTRAVENOUS (NOT OTHERWISE SPECIFIED)
     Route: 042
     Dates: start: 20041108, end: 20041108
  20. HUMALOG [Suspect]
     Indication: HYPOGLYCAEMIA
     Dosage: (24 -24-26 I.E. DAILY SUBCUTANEOUS)
     Route: 058
     Dates: start: 20040729, end: 20041110
  21. IRENAT (IRENAT - SODIUM PERCHLORATE) [Suspect]
     Indication: HYPOTHYROIDISM
     Dosage: (20 DROPS ORAL)
     Route: 048
     Dates: start: 20041006, end: 20041105
  22. ISCOVER (ISCOVER - CLOPIDOGREL SULFATE) (NOT SPECIFIED) [Suspect]
     Indication: THROMBOSIS PROPHYLAXIS
     Dosage: (75 MG QD ORAL)
     Route: 048
     Dates: start: 20041005, end: 20041107
  23. JONOSTERIL /00351401/ (JONOSTERIL -CALCIUM ACETATE/MAGNESIUM ACETATE/P [Suspect]
     Indication: FLUID REPLACEMENT
     Dosage: (1000 TO 2000 ML DAILY INTRAVENOUS (NOT OTHERWISE SPECIFIED)
     Route: 042
     Dates: start: 20041002, end: 20041111
  24. KALINOR /00031402/ (KALINOR RETARD - POTASSIUM CHLORIDE) [Suspect]
     Indication: HYPOKALAEMIA
     Dosage: ( 3 - 6 TABLETS DAILY ORAL),  ( 3 - 6 TABLETS DAILY ORAL)
     Route: 048
     Dates: start: 20041025, end: 20041027
  25. KALINOR /00031402/ (KALINOR RETARD - POTASSIUM CHLORIDE) [Suspect]
     Indication: HYPOKALAEMIA
     Dosage: ( 3 - 6 TABLETS DAILY ORAL),  ( 3 - 6 TABLETS DAILY ORAL)
     Route: 048
     Dates: start: 20041101, end: 20041101
  26. KALINOR-BRAUSETABLETTEN (KALINOR-BRAUSETABLETTEN- POTASSIUM CARBONATE/ [Suspect]
     Indication: HYPOKALAEMIA
     Dosage: (1 DF QD ORAL), (1 DF QD ORAL)
     Route: 048
     Dates: start: 20041015, end: 20041020
  27. KALINOR-BRAUSETABLETTEN (KALINOR-BRAUSETABLETTEN- POTASSIUM CARBONATE/ [Suspect]
     Indication: HYPOKALAEMIA
     Dosage: (1 DF QD ORAL), (1 DF QD ORAL)
     Route: 048
     Dates: start: 20041023, end: 20041025
  28. KALINOR-BRAUSETABLETTEN (KALINOR-BRAUSETABLETTEN- POTASSIUM CARBONATE/ [Suspect]
     Indication: HYPOKALAEMIA
     Dosage: (1 DF QD ORAL), (1 DF QD ORAL)
     Route: 048
     Dates: start: 20041102, end: 20041104
  29. KLACID /00984601/ (KLACID - CLARITHROMYCIN) 250 MG (NOT SPECIFIED) [Suspect]
     Indication: PNEUMONIA
     Dosage: (250 MG 2-3 DAILY SUBCUTANEOUS)
     Route: 058
     Dates: start: 20041018, end: 20041024
  30. LANTOS (LANTUA - INSULIN GLARGINE) ( NOT SPECIFIED) [Suspect]
     Indication: DIABETES MELLITUS
     Dosage: (30-60 I.E. DAILY SUBCUTANEOUS)
     Route: 058
     Dates: start: 20040729, end: 20041110
  31. LENDORMIN (LENDORMIN - BROTIZOLAM)(NOT SPECIFIED) [Suspect]
     Indication: SLEEP DISORDER
     Dosage: (1 DF QD ORAL), (1 DF QD ORAL)
     Route: 048
     Dates: start: 20041015, end: 20041024
  32. LENDORMIN (LENDORMIN - BROTIZOLAM)(NOT SPECIFIED) [Suspect]
     Indication: SLEEP DISORDER
     Dosage: (1 DF QD ORAL), (1 DF QD ORAL)
     Route: 048
     Dates: start: 20041103, end: 20041103
  33. LENDORMIN (LENDORMIN - BROTIZOLAM)(NOT SPECIFIED) [Suspect]
     Indication: SLEEP DISORDER
     Dosage: (1 DF QD ORAL), (1 DF QD ORAL)
     Route: 048
     Dates: start: 20041110, end: 20041110
  34. LOPERAMIDE [Suspect]
     Indication: DIARRHOEA
     Dosage: (2 TABLETS  1 TIME PER 1 DAY ORAL)
     Route: 048
     Dates: start: 20041031, end: 20041031
  35. METOCLOPRAMIDE [Suspect]
     Indication: NAUSEA
     Dosage: (20-80  DROPS DAILY ORAL) (1 VIAL INTRAVENOUS (NOT OTHERWISE SPECIFIED)
     Route: 048
     Dates: start: 20041023, end: 20041023
  36. METOCLOPRAMIDE [Suspect]
     Indication: NAUSEA
     Dosage: (20-80  DROPS DAILY ORAL) (1 VIAL INTRAVENOUS (NOT OTHERWISE SPECIFIED)
     Route: 048
     Dates: start: 20041024, end: 20041025
  37. METOCLOPRAMIDE [Suspect]
     Indication: NAUSEA
     Dosage: (20-80  DROPS DAILY ORAL) (1 VIAL INTRAVENOUS (NOT OTHERWISE SPECIFIED)
     Route: 048
     Dates: start: 20041025, end: 20041028
  38. METOPROLOL TARTRATE [Suspect]
     Indication: HYPERTENSION
     Dosage: (200 MG QD ORAL)
     Route: 048
     Dates: start: 20041101, end: 20041107
  39. PANTOZOL /01263202/ (PANTOZOL - PANTOPRAZOLE) (NOT SPECIFIED) [Suspect]
     Indication: PROPHYLAXIS AGAINST GASTROINTESTINAL ULCER
     Dosage: (40 MG QD ORAL)
     Route: 048
     Dates: start: 20041007, end: 20041031
  40. POTASSIUM CHLORIDE [Suspect]
     Indication: HYPOKALAEMIA
     Dosage: (40 MMOL QD INTRAVENOUS (NOT OTHERWISE SPECIFIED)),(40 MMOL QD INTRAVENOUS
     Route: 042
     Dates: start: 20041027, end: 20041027
  41. POTASSIUM CHLORIDE [Suspect]
     Indication: HYPOKALAEMIA
     Dosage: (40 MMOL QD INTRAVENOUS (NOT OTHERWISE SPECIFIED)),(40 MMOL QD INTRAVENOUS
     Route: 042
     Dates: start: 20041102, end: 20041104
  42. RAMIPRIL [Suspect]
     Indication: HYPERTENSION
     Dosage: (0.5 TABLET 1 TIME PER 1 DAY ORAL)
     Route: 048
     Dates: start: 20041101, end: 20041102
  43. SODIUM CHLORIDE 0.9% [Suspect]
     Indication: FLUID REPLACEMENT
     Dosage: (500 ML QD INTRAVENOUS (NOT OTHERWISE SPECIFIED)
     Route: 042
     Dates: start: 20041024, end: 20041027
  44. SORTIS / 01326101/ (SORTIS ATORVASTATIN CALCIUM) (NOT SPECIFIED) [Suspect]
     Indication: HYPERCHOLESTEROLAEMIA
     Dosage: (40 MG QD ORAL)
     Route: 048
     Dates: start: 20040729, end: 20041102
  45. METHIMAZOLE [Suspect]
     Indication: HYPERTHYROIDISM
     Dosage: (5 MG 1-2  TIMES DAILY ORAL)
     Route: 048
     Dates: start: 20041006, end: 20041105
  46. TOREM /01036501/ (TOREM -TORASEMIDE) (NOT SPECIFIED) [Suspect]
     Indication: RENAL FAILURE
     Dosage: 1-4 TABLETS DAILY ORAL), (1-4 TABLETS DAILY ORAL)
     Route: 048
     Dates: start: 20041012, end: 20041031
  47. TOREM /01036501/ (TOREM -TORASEMIDE) (NOT SPECIFIED) [Suspect]
     Indication: RENAL FAILURE
     Dosage: 1-4 TABLETS DAILY ORAL), (1-4 TABLETS DAILY ORAL)
     Route: 048
     Dates: start: 20041102, end: 20041105
  48. DIGITOXIN INJ [Concomitant]
  49. MORPHINE [Concomitant]
  50. DIFLUCAN [Concomitant]
  51. TAVANIC [Concomitant]
  52. PROTHAZIN [Concomitant]
  53. AMPHO-MORONAL [Concomitant]
  54. PIPERACILLIN W/TRAZOBACTAM [Concomitant]
  55. PERFALGAN [Concomitant]
  56. NOVALGIN [Concomitant]
  57. ROHYPNOL [Concomitant]
  58. HALOPERIDOL [Concomitant]
  59. FENISTIL [Concomitant]
  60. UNACID [Concomitant]
  61. POLYSPECTRAN G [Concomitant]
  62. ZYRTEC [Concomitant]
  63. DERMATOP [Concomitant]

REACTIONS (2)
  - PNEUMONIA [None]
  - STEVENS-JOHNSON SYNDROME [None]
